FAERS Safety Report 4649353-X (Version None)
Quarter: 2005Q2

REPORT INFORMATION
  Report Type: 
  Country: None (occurrence: None)
  Receive Date: 20050429
  Receipt Date: 20050323
  Transmission Date: 20051028
  Serious: Yes (Hospitalization)
  Sender: FDA-Public Use
  Company Number: FR-ABBOTT-05P-056-0295024-01

PATIENT
  Sex: Female
  Weight: 55 kg

DRUGS (4)
  1. HUMIRA [Suspect]
     Indication: RHEUMATOID ARTHRITIS
     Route: 058
     Dates: start: 20040701, end: 20050307
  2. HUMIRA [Suspect]
     Route: 058
  3. HYDROXYCHLOROQUINE PHOSPHATE [Concomitant]
     Indication: DRUG USE FOR UNKNOWN INDICATION
  4. FARKALP [Concomitant]
     Indication: DRUG USE FOR UNKNOWN INDICATION

REACTIONS (7)
  - COUGH [None]
  - INFLUENZA SEROLOGY POSITIVE [None]
  - LUNG NEOPLASM [None]
  - PLEURAL DISORDER [None]
  - PYREXIA [None]
  - RENAL CYST [None]
  - RESPIRATORY TRACT INFECTION VIRAL [None]
